FAERS Safety Report 17786462 (Version 1)
Quarter: 2020Q2

REPORT INFORMATION
  Report Type: Spontaneous
  Country: ES (occurrence: ES)
  Receive Date: 20200514
  Receipt Date: 20200514
  Transmission Date: 20200714
  Serious: Yes (Hospitalization, Other)
  Sender: FDA-Public Use
  Company Number: ES-MICRO LABS LIMITED-ML2020-01533

PATIENT
  Age: 82 Year
  Sex: Female

DRUGS (7)
  1. BROMAZEPAM [Suspect]
     Active Substance: BROMAZEPAM
     Dosage: DAILY
  2. SERTRALINE [Suspect]
     Active Substance: SERTRALINE HYDROCHLORIDE
     Dosage: DAILY
  3. AMLODIPINE/VALSARTAN [Suspect]
     Active Substance: AMLODIPINE\VALSARTAN
     Dosage: 5/160 MG AT BREAKFAST
  4. OMEPRAZOLE. [Suspect]
     Active Substance: OMEPRAZOLE
     Dosage: PER DAY
  5. SIMVASTATIN. [Suspect]
     Active Substance: SIMVASTATIN
     Dosage: AT DINNER
  6. AMLODIPINE [Suspect]
     Active Substance: AMLODIPINE BESYLATE
     Dosage: 2.5 AT NIGHT
  7. ASPIRIN. [Suspect]
     Active Substance: ASPIRIN
     Dosage: PER DAY

REACTIONS (1)
  - Parkinsonism [Recovered/Resolved]
